FAERS Safety Report 6795771-3 (Version None)
Quarter: 2010Q2

REPORT INFORMATION
  Report Type: 
  Country: None (occurrence: None)
  Receive Date: 20100625
  Receipt Date: 20100621
  Transmission Date: 20101027
  Serious: Yes (Other)
  Sender: FDA-Public Use
  Company Number: FR-BRISTOL-MYERS SQUIBB COMPANY-15160799

PATIENT
  Age: 5 Decade
  Sex: Female
  Weight: 90 kg

DRUGS (1)
  1. ORENCIA [Suspect]
     Indication: RHEUMATOID ARTHRITIS
     Dosage: 750MG AND 1GRAMS IV INFUSIONS
     Route: 042

REACTIONS (3)
  - ALLODYNIA [None]
  - INSOMNIA [None]
  - PARAESTHESIA [None]
